FAERS Safety Report 4830259-8 (Version None)
Quarter: 2005Q4

REPORT INFORMATION
  Report Type: 
  Country: None (occurrence: None)
  Receive Date: 20051117
  Receipt Date: 20051108
  Transmission Date: 20060501
  Serious: Yes (Hospitalization)
  Sender: FDA-Public Use
  Company Number: FR-GLAXOSMITHKLINE-B0400265A

PATIENT
  Age: 49 Year
  Sex: Male

DRUGS (35)
  1. CLAVENTIN [Suspect]
     Dosage: 5G THREE TIMES PER DAY
     Route: 042
     Dates: start: 20050919, end: 20050930
  2. VIREAD [Suspect]
     Dosage: 1UNIT PER DAY
     Route: 048
     Dates: start: 20050928
  3. MOPRAL [Suspect]
     Dosage: 20MG PER DAY
     Route: 048
     Dates: start: 20050906
  4. BACTRIM [Suspect]
     Dosage: 1UNIT PER DAY
     Route: 048
     Dates: start: 20051005
  5. MABTHERA [Concomitant]
  6. VINCRISTINE [Concomitant]
  7. ENDOXAN [Concomitant]
  8. DOXORUBICIN HCL [Concomitant]
  9. HOLOXAN [Concomitant]
  10. ETOPOSIDE [Concomitant]
  11. NORVIR [Concomitant]
     Dates: start: 20050916, end: 20050928
  12. TELZIR [Concomitant]
     Dates: start: 20050916
  13. EPIVIR [Concomitant]
     Dates: start: 20050916
  14. VIDEX [Concomitant]
     Dates: start: 20050916, end: 20050928
  15. VANCOMYCIN [Concomitant]
  16. FLAGYL [Concomitant]
  17. AMPHOTERICIN B [Concomitant]
  18. CASPOFUNGIN [Concomitant]
  19. FORTUM [Concomitant]
  20. DALACINE [Concomitant]
  21. TIENAM [Concomitant]
  22. TOBRAMYCINE [Concomitant]
  23. ZYLORIC [Concomitant]
  24. ZOVIRAX [Concomitant]
  25. PHOCYTAN [Concomitant]
  26. ACUPAN [Concomitant]
  27. HEPARIN [Concomitant]
  28. SPASFON [Concomitant]
  29. PERFALGAN [Concomitant]
  30. VOLUVEN [Concomitant]
  31. LASILIX [Concomitant]
  32. OLICLINOMEL [Concomitant]
  33. CERNEVIT-12 [Concomitant]
  34. NONAN [Concomitant]
  35. VINTENE [Concomitant]

REACTIONS (2)
  - CONDITION AGGRAVATED [None]
  - HEPATITIS CHOLESTATIC [None]
